FAERS Safety Report 9907589 (Version 2)
Quarter: 2014Q2

REPORT INFORMATION
  Report Type: Report from Study
  Country: BR (occurrence: BR)
  Receive Date: 20140218
  Receipt Date: 20140521
  Transmission Date: 20141212
  Serious: Yes (Other)
  Sender: FDA-Public Use
  Company Number: BR-US-EMD SERONO, INC.-7269416

PATIENT
  Age: 32 Year
  Sex: Female

DRUGS (1)
  1. REBIF [Suspect]
     Indication: RELAPSING-REMITTING MULTIPLE SCLEROSIS
     Dates: start: 20110317

REACTIONS (13)
  - Convulsion [Recovered/Resolved]
  - Asthenia [Not Recovered/Not Resolved]
  - Dysstasia [Unknown]
  - Blood pressure decreased [Unknown]
  - Amnesia [Recovered/Resolved]
  - Dyspnoea [Not Recovered/Not Resolved]
  - Malaise [Not Recovered/Not Resolved]
  - Pain in extremity [Recovering/Resolving]
  - Feeling abnormal [Recovering/Resolving]
  - Insomnia [Recovering/Resolving]
  - Fatigue [Not Recovered/Not Resolved]
  - Headache [Recovering/Resolving]
  - Chills [Recovering/Resolving]
